FAERS Safety Report 5817852-0 (Version None)
Quarter: 2008Q3

REPORT INFORMATION
  Report Type: 
  Country: None (occurrence: None)
  Receive Date: 20080722
  Receipt Date: 20070612
  Transmission Date: 20090109
  Serious: No
  Sender: FDA-Public Use
  Company Number: US-BAYER-US-2007-021409

PATIENT
  Age: 58 Year
  Sex: Female
  Weight: 75 kg

DRUGS (3)
  1. MAGNEVIST [Suspect]
     Indication: ANGIOGRAM
     Dosage: UNIT DOSE: 15 ML
     Route: 042
     Dates: start: 20070607, end: 20070607
  2. LIPITOR [Concomitant]
  3. ASPIRIN [Concomitant]

REACTIONS (3)
  - LIP SWELLING [None]
  - PARAESTHESIA ORAL [None]
  - URTICARIA [None]
